FAERS Safety Report 7065349-5 (Version None)
Quarter: 2010Q4

REPORT INFORMATION
  Report Type: 
  Country: None (occurrence: None)
  Receive Date: 20101027
  Receipt Date: 20101015
  Transmission Date: 20110411
  Serious: Yes (Other)
  Sender: FDA-Public Use
  Company Number: JP-ROCHE-726941

PATIENT
  Sex: Female
  Weight: 34 kg

DRUGS (21)
  1. ACTEMRA [Suspect]
     Indication: RHEUMATOID ARTHRITIS
     Route: 041
     Dates: start: 20090826, end: 20090826
  2. ACTEMRA [Suspect]
     Route: 041
     Dates: start: 20090930, end: 20090930
  3. ACTEMRA [Suspect]
     Route: 041
     Dates: start: 20091028, end: 20091028
  4. ACTEMRA [Suspect]
     Route: 041
     Dates: start: 20091125, end: 20091125
  5. ACTEMRA [Suspect]
     Route: 041
     Dates: start: 20091224, end: 20091224
  6. ACTEMRA [Suspect]
     Route: 041
     Dates: start: 20100120, end: 20100120
  7. ACTEMRA [Suspect]
     Route: 041
     Dates: start: 20100216, end: 20100831
  8. RHEUMATREX [Suspect]
     Indication: RHEUMATOID ARTHRITIS
     Route: 048
     Dates: start: 20100216
  9. PREDNISOLONE [Suspect]
     Indication: RHEUMATOID ARTHRITIS
     Dosage: DOSE FORM: PERORAL AGENT NOTE: 2-2-2
     Route: 048
     Dates: start: 20070406
  10. OMEPRAL [Suspect]
     Indication: PROPHYLAXIS
     Dosage: FORM: ENTERIC COATING DRUG NOTE: 1T ? ONCE/DAY
     Route: 048
     Dates: start: 20070406
  11. VOLTAREN [Suspect]
     Dosage: NOTE: TON VOLTAREN:LOTION(DICLOFENAC SODIUM)
     Route: 062
     Dates: start: 20081204, end: 20100907
  12. VOLTAREN [Suspect]
     Dosage: DOSE FORM: SUSTAINED RELEASE CAPSULE NOTE: 1C? TWICE/DAY
     Route: 048
     Dates: start: 20090706, end: 20100907
  13. OLMETEC [Concomitant]
     Dosage: NOTE: 1T ? ONCE/DAY
     Route: 048
     Dates: start: 20080226, end: 20100907
  14. LIPITOR [Concomitant]
     Dosage: NOTE: 1T ? ONCE/DAY
     Route: 048
     Dates: start: 20080223
  15. BASEN [Concomitant]
     Dosage: NOTE: 0.2T?3/DAY
     Route: 048
     Dates: start: 20070407, end: 20100907
  16. BAKTAR [Concomitant]
     Route: 048
  17. ALOSITOL [Concomitant]
     Dosage: NOTE: 1T ? ONCE/DAY
     Route: 048
     Dates: start: 20080505
  18. ACTONEL [Concomitant]
     Route: 048
  19. CYANOCOBALAMIN [Concomitant]
     Dosage: NOTE: 1T?3 TIMES/DAY
     Route: 048
     Dates: start: 20081022
  20. POLARAMINE [Concomitant]
     Dosage: NOTE: 2T ? ONCE/DAY
     Route: 048
     Dates: start: 20100608, end: 20100907
  21. CYTOTEC [Concomitant]
     Dosage: NOTE: 2T ? TWICE/DAY
     Route: 048
     Dates: start: 20080520, end: 20100907

REACTIONS (2)
  - LARGE INTESTINAL ULCER [None]
  - LARGE INTESTINE PERFORATION [None]
